FAERS Safety Report 8058379-8 (Version None)
Quarter: 2012Q1

REPORT INFORMATION
  Report Type: 
  Country: None (occurrence: None)
  Receive Date: 20120119
  Receipt Date: 20120119
  Transmission Date: 20120608
  Serious: Yes (Disabling)
  Sender: FDA-Public Use
  Company Number: None

PATIENT
  Sex: Female
  Weight: 68.9467 kg

DRUGS (1)
  1. BONIVA [Suspect]
     Indication: OSTEOPOROSIS
     Dosage: 1 PER MOUTH MOUTH
     Route: 048
     Dates: start: 20090101, end: 20091201

REACTIONS (4)
  - BONE DENSITY DECREASED [None]
  - GAIT DISTURBANCE [None]
  - MULTIPLE FRACTURES [None]
  - PAIN [None]
